FAERS Safety Report 4314875-8 (Version None)
Quarter: 2004Q1

REPORT INFORMATION
  Report Type: 
  Country: None (occurrence: None)
  Receive Date: 20040308
  Receipt Date: 20040224
  Transmission Date: 20041129
  Serious: Yes (Hospitalization)
  Sender: FDA-Public Use
  Company Number: 2004-113430-NL

PATIENT
  Age: 78 Year
  Sex: Male

DRUGS (2)
  1. ORGARAN [Suspect]
     Dosage: DF
     Dates: start: 20030609
  2. HEPARIN-FRACTION, SODIUM SALT [Suspect]
     Dosage: 500 MG
     Route: 058
     Dates: start: 20030421, end: 20040430

REACTIONS (1)
  - THROMBOCYTOPENIA [None]
